FAERS Safety Report 8489747-8 (Version None)
Quarter: 2012Q3

REPORT INFORMATION
  Report Type: 
  Country: None (occurrence: None)
  Receive Date: 20120705
  Receipt Date: 20120628
  Transmission Date: 20120928
  Serious: Yes (Other)
  Sender: FDA-Public Use
  Company Number: RU-VIIV HEALTHCARE LIMITED-B0812331A

PATIENT
  Sex: Female

DRUGS (4)
  1. INVIRASE [Suspect]
     Indication: HIV INFECTION
     Route: 048
     Dates: start: 20120312
  2. RITONAVIR [Suspect]
     Indication: HIV INFECTION
     Route: 048
     Dates: start: 20120312
  3. ABACAVIR SULFATE/LAMIVUDINE [Suspect]
     Indication: HIV INFECTION
     Route: 048
     Dates: start: 20120505
  4. COMBIVIR [Suspect]
     Indication: HIV INFECTION
     Route: 048
     Dates: start: 20120312

REACTIONS (2)
  - MATERNAL EXPOSURE DURING PREGNANCY [None]
  - ANAEMIA [None]
